FAERS Safety Report 12536944 (Version 2)
Quarter: 2016Q3

REPORT INFORMATION
  Report Type: Report from Study
  Country: US (occurrence: US)
  Receive Date: 20160707
  Receipt Date: 20160810
  Transmission Date: 20161109
  Serious: Yes (Other)
  Sender: FDA-Public Use
  Company Number: US-AMGEN-USASL2016084745

PATIENT
  Age: 88 Year
  Sex: Female

DRUGS (3)
  1. BONIVA [Concomitant]
     Active Substance: IBANDRONATE SODIUM
  2. PROLIA [Suspect]
     Active Substance: DENOSUMAB
     Indication: OSTEOPOROSIS
     Dosage: UNK
     Route: 065
  3. SALMON OIL [Concomitant]
     Active Substance: FISH OIL

REACTIONS (7)
  - Osteonecrosis [Unknown]
  - Tooth extraction [Unknown]
  - Stomatitis necrotising [Unknown]
  - Osteonecrosis of jaw [Unknown]
  - Tooth infection [Unknown]
  - Dental caries [Unknown]
  - Tooth fracture [Unknown]
